FAERS Safety Report 16451202 (Version 1)
Quarter: 2019Q2

REPORT INFORMATION
  Report Type: Report from Study
  Country: FR (occurrence: FR)
  Receive Date: 20190619
  Receipt Date: 20190619
  Transmission Date: 20190711
  Serious: Yes (Hospitalization, Other)
  Sender: FDA-Public Use
  Company Number: FR-PFIZER INC-2019253118

PATIENT
  Sex: Male
  Weight: 74 kg

DRUGS (19)
  1. SODIUM OXYBATE. [Suspect]
     Active Substance: SODIUM OXYBATE
     Dosage: 3.5 G, 2X/DAY
     Route: 048
     Dates: start: 20100219, end: 20100226
  2. SODIUM OXYBATE. [Suspect]
     Active Substance: SODIUM OXYBATE
     Dosage: 4.5 G, 2X/DAY
     Route: 048
     Dates: start: 20100227
  3. SODIUM OXYBATE. [Suspect]
     Active Substance: SODIUM OXYBATE
     Dosage: 9 G, DAILY (TWICE NIGHLTY)
     Route: 048
     Dates: start: 20110214
  4. SODIUM OXYBATE. [Suspect]
     Active Substance: SODIUM OXYBATE
     Dosage: 3 G, 2X/DAY
     Route: 048
     Dates: start: 20061201
  5. SODIUM OXYBATE. [Suspect]
     Active Substance: SODIUM OXYBATE
     Dosage: 6.4 G, DAILY (NIGHTLY)
     Route: 048
  6. SODIUM OXYBATE. [Suspect]
     Active Substance: SODIUM OXYBATE
     Dosage: 4.5 G, 2X/DAY
     Route: 048
     Dates: start: 20101114
  7. SODIUM OXYBATE. [Suspect]
     Active Substance: SODIUM OXYBATE
     Dosage: UNK
     Route: 048
     Dates: start: 20060524, end: 20061116
  8. SODIUM OXYBATE. [Suspect]
     Active Substance: SODIUM OXYBATE
     Dosage: 9 G, DAILY (TWICE NIGHTLY)
     Route: 048
     Dates: start: 20100916, end: 2010
  9. SODIUM OXYBATE. [Suspect]
     Active Substance: SODIUM OXYBATE
     Indication: NARCOLEPSY
     Dosage: 2G AT FIRST INTAKE; 2G AT SECOND INTAKE; 2G AT THE THIRD INTAKE; 3G AT THE LAST INTAKE
     Route: 048
     Dates: start: 20140305
  10. SODIUM OXYBATE. [Suspect]
     Active Substance: SODIUM OXYBATE
     Dosage: 9 G, 1X/DAY (TWICE NIGHTLY)
     Route: 048
     Dates: start: 20100716
  11. LIPANTHYL [Concomitant]
     Active Substance: FENOFIBRATE
     Dosage: 1 DF, 1X/DAY
     Route: 048
  12. RITALINE [Concomitant]
     Active Substance: METHYLPHENIDATE HYDROCHLORIDE
     Dosage: 10 MG, 3X/DAY
  13. SODIUM OXYBATE. [Suspect]
     Active Substance: SODIUM OXYBATE
     Dosage: 3 G, 3X/DAY
     Route: 048
  14. SODIUM OXYBATE. [Suspect]
     Active Substance: SODIUM OXYBATE
     Indication: CATAPLEXY
     Dosage: 9 G, DAILY (TWICE NIGHTLY)
     Route: 048
     Dates: start: 20100816, end: 2010
  15. EFFEXOR [Suspect]
     Active Substance: VENLAFAXINE HYDROCHLORIDE
     Dosage: UNK
  16. SODIUM OXYBATE. [Suspect]
     Active Substance: SODIUM OXYBATE
     Dosage: 2.25 G, DAILY
     Route: 048
     Dates: start: 20061117, end: 20061130
  17. SODIUM OXYBATE. [Suspect]
     Active Substance: SODIUM OXYBATE
     Dosage: 9 G, DAILY (TWICE NIGHTLY)
     Route: 048
     Dates: start: 20070926
  18. SODIUM OXYBATE. [Suspect]
     Active Substance: SODIUM OXYBATE
     Dosage: 7 G, DAILY (NIGHTLY)
     Route: 048
  19. PROZACTIN [Concomitant]
     Dosage: 20 MG, 1X/DAY

REACTIONS (18)
  - Suicidal ideation [Recovered/Resolved]
  - Incontinence [Not Recovered/Not Resolved]
  - Nightmare [Not Recovered/Not Resolved]
  - Suicide attempt [Recovered/Resolved]
  - Drug intolerance [Unknown]
  - Dry skin [Not Recovered/Not Resolved]
  - Gastrooesophageal reflux disease [Not Recovered/Not Resolved]
  - Depression [Not Recovered/Not Resolved]
  - Throat irritation [Not Recovered/Not Resolved]
  - Hallucination [Unknown]
  - Gastrointestinal disorder [Not Recovered/Not Resolved]
  - Enuresis [Not Recovered/Not Resolved]
  - Sleep disorder [Not Recovered/Not Resolved]
  - Overdose [Recovered/Resolved]
  - Off label use [Unknown]
  - Abdominal pain [Not Recovered/Not Resolved]
  - Libido disorder [Not Recovered/Not Resolved]
  - Inappropriate schedule of product administration [Not Recovered/Not Resolved]

NARRATIVE: CASE EVENT DATE: 20140305
